FAERS Safety Report 23556278 (Version 2)
Quarter: 2024Q1

REPORT INFORMATION
  Report Type: Spontaneous
  Country: US (occurrence: US)
  Receive Date: 20240223
  Receipt Date: 20240315
  Transmission Date: 20240409
  Serious: Yes (Hospitalization)
  Sender: FDA-Public Use
  Company Number: US-UNITED THERAPEUTICS-UNT-2024-001751

PATIENT
  Age: 66 Year
  Sex: Female

DRUGS (6)
  1. REMODULIN [Suspect]
     Active Substance: TREPROSTINIL
     Indication: Pulmonary arterial hypertension
     Dosage: 0.07576 ?G/KG, CONTINUING
     Route: 058
  2. REMODULIN [Suspect]
     Active Substance: TREPROSTINIL
     Dosage: UNK, CONTINUING
     Route: 058
     Dates: start: 202304
  3. REMODULIN [Suspect]
     Active Substance: TREPROSTINIL
     Indication: Pulmonary arterial hypertension
     Dosage: 0.07576 ?G/KG, CONTINUING
     Route: 041
     Dates: start: 202401
  4. REMODULIN [Suspect]
     Active Substance: TREPROSTINIL
     Dosage: UNK, CONTINUING
     Route: 041
     Dates: start: 20240117
  5. TRIAMCINOLONE [Suspect]
     Active Substance: TRIAMCINOLONE
     Indication: Infusion site pain
     Dosage: UNK
     Route: 065
  6. LIDOCAINE AND PRILOCAINE [Suspect]
     Active Substance: LIDOCAINE\PRILOCAINE
     Indication: Infusion site pain
     Dosage: UNK
     Route: 065

REACTIONS (12)
  - Wrong technique in product usage process [Unknown]
  - COVID-19 [Unknown]
  - Injection site swelling [Unknown]
  - Pain [Unknown]
  - Dry mouth [Unknown]
  - Dysphagia [Unknown]
  - Illness [Unknown]
  - Device use error [Unknown]
  - Infusion site swelling [Not Recovered/Not Resolved]
  - Infusion site pain [Not Recovered/Not Resolved]
  - Therapy non-responder [Unknown]
  - Trismus [Unknown]

NARRATIVE: CASE EVENT DATE: 20240101
